FAERS Safety Report 13745307 (Version 1)
Quarter: 2017Q3

REPORT INFORMATION
  Report Type: Spontaneous
  Country: HK (occurrence: HK)
  Receive Date: 20170712
  Receipt Date: 20170712
  Transmission Date: 20171127
  Serious: Yes (Other)
  Sender: FDA-Public Use
  Company Number: HK-BAYER-2017-128807

PATIENT
  Age: 71 Year
  Sex: Male

DRUGS (5)
  1. STIVARGA [Suspect]
     Active Substance: REGORAFENIB
     Indication: COLORECTAL CANCER METASTATIC
     Dosage: 2 X 40 (80 MG)
     Route: 048
     Dates: start: 201502
  2. STIVARGA [Suspect]
     Active Substance: REGORAFENIB
     Indication: COLORECTAL CANCER METASTATIC
     Dosage: 4 X 40 (160 MG)
     Route: 048
     Dates: end: 201508
  3. PANITUMUMAB [Concomitant]
     Active Substance: PANITUMUMAB
  4. STIVARGA [Suspect]
     Active Substance: REGORAFENIB
     Indication: COLORECTAL CANCER METASTATIC
     Dosage: 3 X 40 (120 MG)
     Route: 048
  5. IRINOTECAN [Concomitant]
     Active Substance: IRINOTECAN

REACTIONS (5)
  - Hyperkeratosis [Recovering/Resolving]
  - Colorectal cancer metastatic [None]
  - Fatigue [None]
  - Dry skin [Recovering/Resolving]
  - Palmar-plantar erythrodysaesthesia syndrome [Recovering/Resolving]
